FAERS Safety Report 15451265 (Version 1)
Quarter: 2018Q3

REPORT INFORMATION
  Report Type: Spontaneous
  Country: US (occurrence: US)
  Receive Date: 20180927
  Receipt Date: 20180927
  Transmission Date: 20181010
  Serious: Yes (Disabling)
  Sender: FDA-Public Use
  Company Number: None

PATIENT
  Age: 53 Year
  Sex: Female
  Weight: 63 kg

DRUGS (7)
  1. RISINOPRIL [Concomitant]
  2. ZANTAC [Concomitant]
     Active Substance: RANITIDINE HYDROCHLORIDE
  3. LEXAPRO [Concomitant]
     Active Substance: ESCITALOPRAM OXALATE
  4. CLONAZEPAM. [Concomitant]
     Active Substance: CLONAZEPAM
  5. TIZANIDINE. [Concomitant]
     Active Substance: TIZANIDINE
  6. ZOFRAN [Concomitant]
     Active Substance: ONDANSETRON HYDROCHLORIDE
  7. OLMESARTAN MEDIXIMIL AND HYDROCHLOROTHIAZIDE TABLETS 20MG/12.5MG [Suspect]
     Active Substance: HYDROCHLOROTHIAZIDE\OLMESARTAN MEDOXOMIL
     Indication: HYPERTENSION
     Dosage: ?          QUANTITY:1 DF DOSAGE FORM;?
     Route: 048
     Dates: start: 20180926, end: 20180927

REACTIONS (5)
  - Nausea [None]
  - Diarrhoea [None]
  - Vomiting [None]
  - Musculoskeletal stiffness [None]
  - Drug ineffective [None]

NARRATIVE: CASE EVENT DATE: 20180927
